FAERS Safety Report 21224034 (Version 1)
Quarter: 2022Q3

REPORT INFORMATION
  Report Type: Spontaneous
  Country: US (occurrence: US)
  Receive Date: 20220817
  Receipt Date: 20220817
  Transmission Date: 20221026
  Serious: No
  Sender: FDA-Public Use
  Company Number: US-SA-2021MK000130

PATIENT
  Age: 65 Year
  Sex: Male
  Weight: 68.100 kg

DRUGS (2)
  1. AFREZZA [Suspect]
     Active Substance: INSULIN HUMAN
     Indication: Type 2 diabetes mellitus
     Dates: start: 20210922
  2. HUMALOG [Concomitant]
     Active Substance: INSULIN LISPRO
     Indication: Type 2 diabetes mellitus

REACTIONS (2)
  - Blood glucose increased [Recovered/Resolved]
  - Product label confusion [Unknown]

NARRATIVE: CASE EVENT DATE: 20210922
